FAERS Safety Report 9386690 (Version 1)
Quarter: 2013Q3

REPORT INFORMATION
  Report Type: Report from Study
  Country: NL (occurrence: NL)
  Receive Date: 20130708
  Receipt Date: 20130708
  Transmission Date: 20140515
  Serious: Yes (Other)
  Sender: FDA-Public Use
  Company Number: PHHY2013NL071479

PATIENT
  Sex: Female

DRUGS (4)
  1. ZOMETA [Suspect]
     Indication: BREAST CANCER METASTATIC
     Dosage: 4 MG/ 100ML ONCE EVERY 4 WEEKS
     Route: 042
  2. ZOMETA [Suspect]
     Dosage: 4 MG/ 100ML ONCE EVERY 4 WEEKS
     Route: 042
     Dates: start: 20130129
  3. ZOMETA [Suspect]
     Dosage: 4 MG/ 100ML ONCE EVERY 4 WEEKS
     Route: 042
     Dates: start: 20130521
  4. ZOMETA [Suspect]
     Dosage: 4 MG/ 100ML ONCE EVERY 4 WEEKS
     Route: 042
     Dates: start: 20130619

REACTIONS (2)
  - Terminal state [Unknown]
  - Drug ineffective [Unknown]
